FAERS Safety Report 6078852-1 (Version None)
Quarter: 2009Q1

REPORT INFORMATION
  Report Type: 
  Country: None (occurrence: None)
  Receive Date: 20090216
  Receipt Date: 20090205
  Transmission Date: 20090719
  Serious: Yes (Other)
  Sender: FDA-Public Use
  Company Number: PHEH2009US01461

PATIENT
  Sex: Female

DRUGS (6)
  1. GLEEVEC [Suspect]
     Dosage: 400 MG, QD
     Dates: start: 20040101
  2. DYAZIDE [Suspect]
     Indication: HYPERTENSION
  3. LASIX [Suspect]
     Indication: HYPERTENSION
     Dosage: UNK
  4. ASPIRIN [Concomitant]
  5. IBUPROFEN [Concomitant]
     Dosage: 200 MG, UNK
  6. ZANTAC [Concomitant]
     Dosage: 150 MG, QD

REACTIONS (5)
  - ASTHENIA [None]
  - BLOOD CREATININE INCREASED [None]
  - DRUG INTERACTION [None]
  - FLUID RETENTION [None]
  - RENAL DISORDER [None]
